FAERS Safety Report 4301208-6 (Version None)
Quarter: 2004Q1

REPORT INFORMATION
  Report Type: 
  Country: None (occurrence: None)
  Receive Date: 20040218
  Receipt Date: 20031113
  Transmission Date: 20041129
  Serious: No
  Sender: FDA-Public Use
  Company Number: 2003-11-0967

PATIENT
  Age: 22 Year
  Sex: Male
  Weight: 102.0593 kg

DRUGS (2)
  1. PEG-INTRON [Suspect]
     Indication: HEPATITIS C
     Dosage: 150 MCG QW
     Route: 058
     Dates: start: 20031004
  2. REBETOL [Suspect]
     Route: 048
     Dates: start: 20031004

REACTIONS (5)
  - ALOPECIA [None]
  - CHILLS [None]
  - FEELING COLD [None]
  - INJECTION SITE PAIN [None]
  - PAIN [None]
